FAERS Safety Report 10931757 (Version 1)
Quarter: 2015Q1

REPORT INFORMATION
  Report Type: Spontaneous
  Country: US (occurrence: US)
  Receive Date: 20150319
  Receipt Date: 20150319
  Transmission Date: 20150721
  Serious: Yes (Other)
  Sender: FDA-Public Use
  Company Number: CHPA2015US003781

PATIENT
  Sex: Female

DRUGS (1)
  1. VOLTAREN [Suspect]
     Active Substance: DICLOFENAC SODIUM
     Indication: MYALGIA
     Dosage: UNK
     Route: 061
     Dates: start: 20150310, end: 20150310

REACTIONS (2)
  - Angioedema [Unknown]
  - Product use issue [Unknown]

NARRATIVE: CASE EVENT DATE: 20150310
